FAERS Safety Report 9743266 (Version 2)
Quarter: 2015Q3

REPORT INFORMATION
  Report Type: Spontaneous
  Country: US (occurrence: US)
  Receive Date: 20131210
  Receipt Date: 20150805
  Transmission Date: 20151125
  Serious: No
  Sender: FDA-Public Use
  Company Number: US-GILEAD-2009-0025598

PATIENT
  Age: 52 Year
  Sex: Female
  Weight: 67.13 kg

DRUGS (9)
  1. REVATIO [Concomitant]
     Active Substance: SILDENAFIL CITRATE
  2. LANOXIN [Concomitant]
     Active Substance: DIGOXIN
  3. NOVOLOG [Concomitant]
     Active Substance: INSULIN ASPART
  4. LETAIRIS [Suspect]
     Active Substance: AMBRISENTAN
     Indication: PULMONARY ARTERIAL HYPERTENSION
     Route: 048
     Dates: start: 20081205, end: 20091118
  5. QUINAPRIL/HCTZ [Concomitant]
  6. LASIX [Concomitant]
     Active Substance: FUROSEMIDE
  7. URSO [Concomitant]
     Active Substance: URSODIOL
  8. NOVOLIN N [Concomitant]
     Active Substance: INSULIN HUMAN
  9. NADOLOL. [Concomitant]
     Active Substance: NADOLOL

REACTIONS (1)
  - Unevaluable event [Unknown]
